FAERS Safety Report 16759703 (Version 3)
Quarter: 2020Q1

REPORT INFORMATION
  Report Type: Report from Study
  Country: None (occurrence: PE)
  Receive Date: 20190830
  Receipt Date: 20200323
  Transmission Date: 20200409
  Serious: Yes (Hospitalization, Other)
  Sender: FDA-Public Use
  Company Number: PE-ABBVIE-19K-127-2906993-00

PATIENT
  Age: 49 Year
  Sex: Male
  Weight: 47 kg

DRUGS (1)
  1. HUMIRA [Suspect]
     Active Substance: ADALIMUMAB
     Indication: RHEUMATOID ARTHRITIS
     Route: 058
     Dates: start: 20140826

REACTIONS (7)
  - Surgery [Recovering/Resolving]
  - Laparotomy [Recovering/Resolving]
  - Colostomy [Recovering/Resolving]
  - Acute abdomen [Recovering/Resolving]
  - Protein total decreased [Recovering/Resolving]
  - Dehydration [Recovering/Resolving]
  - Pancreatic carcinoma [Recovering/Resolving]

NARRATIVE: CASE EVENT DATE: 20190708
